FAERS Safety Report 9376312 (Version 1)
Quarter: 2013Q3

REPORT INFORMATION
  Report Type: Spontaneous
  Country: IT (occurrence: IT)
  Receive Date: 20130701
  Receipt Date: 20130701
  Transmission Date: 20140515
  Serious: Yes (Hospitalization)
  Sender: FDA-Public Use
  Company Number: PHHY2013IT066291

PATIENT
  Age: 68 Year
  Sex: Male

DRUGS (13)
  1. FLUDARABINE [Suspect]
     Indication: ACUTE MYELOID LEUKAEMIA
     Dosage: 25 MG/M2, ONCE/SINGLE
     Dates: start: 20130430, end: 20130504
  2. CITARABINA HOSPIRA [Suspect]
     Indication: ACUTE MYELOID LEUKAEMIA
     Dosage: 2000 UG/CM2, ONCE/SINGLE
     Dates: start: 20130430, end: 20130504
  3. DESAMETASONE FOSFATO HOSPIRA [Concomitant]
     Indication: CHEMOTHERAPY
     Dosage: 8 MG, UNK
     Dates: start: 20130430, end: 20130504
  4. LUXAZONE [Concomitant]
     Dosage: 1 DRP, UNK
     Dates: start: 20130430, end: 20130504
  5. ALLOPURINOLO MOLTENI [Concomitant]
     Indication: PROPHYLAXIS
     Dosage: 300 MG, UNK
     Route: 048
     Dates: start: 20130430, end: 20130504
  6. ESAFOSFINA 10G/ML [Concomitant]
     Dosage: 10 OT, UNK
     Dates: start: 20130513, end: 20130525
  7. AVODART [Concomitant]
     Indication: BENIGN PROSTATIC HYPERPLASIA
     Dosage: 0.5 MG, UNK
     Route: 048
     Dates: start: 20030101, end: 20130525
  8. LEVOXACIN [Concomitant]
     Dosage: 500 MG, UNK
     Route: 048
     Dates: start: 20130428, end: 20130525
  9. LAMIVUDINA TEVA PHARMA [Concomitant]
     Dosage: 100 MG, UNK
     Route: 048
     Dates: start: 20130430, end: 20130525
  10. TAVOR (FLUCONAZOLE) [Concomitant]
     Dosage: 1 MG, UNK
     Route: 048
     Dates: start: 20130502, end: 20130525
  11. KCL-RETARD [Concomitant]
     Dosage: 1800 MG, UNK
     Route: 048
     Dates: start: 20130506, end: 20130525
  12. LAEVOLAC 66.7G/100ML [Concomitant]
     Dosage: 30 ML, UNK
     Route: 048
     Dates: start: 20130502, end: 20130525
  13. NOXAFIL [Concomitant]
     Indication: PROPHYLAXIS
     Dosage: 15 ML, UNK
     Dates: start: 20130430, end: 20130523

REACTIONS (2)
  - Pain [Recovered/Resolved]
  - Stomatitis [Recovered/Resolved]
